FAERS Safety Report 7743715-X (Version None)
Quarter: 2011Q3

REPORT INFORMATION
  Report Type: 
  Country: None (occurrence: None)
  Receive Date: 20110912
  Receipt Date: 20110829
  Transmission Date: 20111222
  Serious: Yes (Death, Life-Threatening, Hospitalization)
  Sender: FDA-Public Use
  Company Number: IT-MILLENNIUM PHARMACEUTICALS, INC.-2011-03917

PATIENT

DRUGS (7)
  1. VELCADE [Suspect]
     Indication: MULTIPLE MYELOMA
     Dosage: 2.6 MG, UNK
     Route: 042
     Dates: start: 20110704, end: 20110714
  2. NITROGLYCERIN [Concomitant]
     Dosage: 5 MG, UNK
     Dates: start: 20110101, end: 20110719
  3. DEXAMETHASONE [Concomitant]
     Dosage: 20 MG, UNK
     Route: 042
     Dates: start: 20110704
  4. DEXAMETHASONE [Concomitant]
     Dosage: 40 MG, UNK
     Route: 042
     Dates: start: 20110714
  5. BISOPROLOL FUMARATE [Concomitant]
     Dosage: 2.5 MG, UNK
     Route: 048
     Dates: start: 20110101
  6. LASIX [Concomitant]
     Dosage: 100 MG, UNK
     Route: 048
     Dates: start: 20110622
  7. LASITONE [Concomitant]
     Dosage: 50 MG, UNK
     Route: 048
     Dates: start: 20110101

REACTIONS (5)
  - DYSPNOEA [None]
  - THROMBOCYTOPENIA [None]
  - ASTHENIA [None]
  - PANCYTOPENIA [None]
  - ANAEMIA [None]
